FAERS Safety Report 25956689 (Version 1)
Quarter: 2025Q4

REPORT INFORMATION
  Report Type: Spontaneous
  Country: US (occurrence: US)
  Receive Date: 20251024
  Receipt Date: 20251024
  Transmission Date: 20260118
  Serious: No
  Sender: HISAMITSU PHARMACEUTICAL CO., INC.
  Company Number: US-HISAMITSU PHARMACEUTICAL CO., INC.-2025-NOV-US001357

PATIENT
  Age: 18 Year
  Sex: Female

DRUGS (2)
  1. SECUADO [Suspect]
     Active Substance: ASENAPINE
     Indication: Schizophrenia
     Dosage: 7.6 MG, DAILY
     Route: 062
  2. SECUADO [Suspect]
     Active Substance: ASENAPINE
     Indication: Psychotic disorder

REACTIONS (1)
  - Product ineffective [Not Recovered/Not Resolved]
